FAERS Safety Report 8479535-0 (Version None)
Quarter: 2012Q2

REPORT INFORMATION
  Report Type: 
  Country: None (occurrence: None)
  Receive Date: 20120629
  Receipt Date: 20120619
  Transmission Date: 20120825
  Serious: Yes (Life-Threatening)
  Sender: FDA-Public Use
  Company Number: IT-JNJFOC-20120610971

PATIENT

DRUGS (4)
  1. CLONAZEPAM [Suspect]
     Indication: DYSTONIA
     Route: 065
  2. SULPIRIDE [Suspect]
     Indication: DYSTONIA
     Route: 065
  3. AN UNKNOWN MEDICATION [Suspect]
     Indication: DYSTONIA
     Route: 065
  4. HALOPERIDOL [Suspect]
     Indication: DYSTONIA
     Route: 065

REACTIONS (1)
  - DYSTONIA [None]
